FAERS Safety Report 6303897-3 (Version None)
Quarter: 2009Q3

REPORT INFORMATION
  Report Type: 
  Country: None (occurrence: None)
  Receive Date: 20090805
  Receipt Date: 20090730
  Transmission Date: 20100115
  Serious: Yes (Hospitalization)
  Sender: FDA-Public Use
  Company Number: 2009SP016679

PATIENT
  Age: 60 Year
  Sex: Female
  Weight: 83.9 kg

DRUGS (2)
  1. TEMODAR [Suspect]
     Indication: GLIOBLASTOMA MULTIFORME
     Dates: start: 20090708, end: 20090723
  2. TEMODAR [Suspect]
     Indication: GLIOBLASTOMA MULTIFORME
     Dates: start: 20080904

REACTIONS (2)
  - DEEP VEIN THROMBOSIS [None]
  - EMBOLISM [None]
